FAERS Safety Report 9106647 (Version 1)
Quarter: 2013Q1

REPORT INFORMATION
  Report Type: Spontaneous
  Country: EC (occurrence: EC)
  Receive Date: 20130222
  Receipt Date: 20130222
  Transmission Date: 20140127
  Serious: Yes (Other)
  Sender: FDA-Public Use
  Company Number: PHHY2013EC016842

PATIENT
  Sex: Female

DRUGS (1)
  1. EXFORGE HCT [Suspect]
     Indication: HYPERTENSION
     Dosage: UNK UKN, UNK
     Dates: start: 20111108

REACTIONS (1)
  - Neoplasm malignant [Not Recovered/Not Resolved]
